FAERS Safety Report 22104072 (Version 1)
Quarter: 2023Q1

REPORT INFORMATION
  Report Type: Spontaneous
  Country: US (occurrence: US)
  Receive Date: 20230316
  Receipt Date: 20230316
  Transmission Date: 20230417
  Serious: No
  Sender: FDA-Public Use
  Company Number: US-SA-SAC20230315000284

PATIENT
  Sex: Male
  Weight: 86.18 kg

DRUGS (21)
  1. DUPIXENT [Suspect]
     Active Substance: DUPILUMAB
     Indication: Asthma
     Dosage: 300 MG, QOW
     Route: 058
  2. TRAZODONE HCL [Concomitant]
     Active Substance: TRAZODONE HYDROCHLORIDE
  3. DIETARY SUPPLEMENT [Concomitant]
     Active Substance: DIETARY SUPPLEMENT
  4. FISH OIL [Concomitant]
     Active Substance: FISH OIL
  5. PROMETHAZINE HYDROCHLORIDE [Concomitant]
     Active Substance: PROMETHAZINE HYDROCHLORIDE
  6. ZANAFLEX [Concomitant]
     Active Substance: TIZANIDINE HYDROCHLORIDE
  7. SELENIUM [Concomitant]
     Active Substance: SELENIUM
  8. VITAMIN C [Concomitant]
     Active Substance: ASCORBIC ACID
  9. GINGER ROOT [ZINGIBER OFFICINALE RHIZOME] [Concomitant]
  10. XYZAL [Concomitant]
     Active Substance: LEVOCETIRIZINE DIHYDROCHLORIDE
  11. HYDROCHLOROTHIAZIDE [Concomitant]
     Active Substance: HYDROCHLOROTHIAZIDE
  12. GABAPENTIN [Concomitant]
     Active Substance: GABAPENTIN
  13. VITAMIN D3 [Concomitant]
     Active Substance: CHOLECALCIFEROL
  14. AZITHROMYCIN [Concomitant]
     Active Substance: AZITHROMYCIN
  15. FINASTERIDE [Concomitant]
     Active Substance: FINASTERIDE
  16. FAMOTIDINE [Concomitant]
     Active Substance: FAMOTIDINE
  17. CELECOXIB [Concomitant]
     Active Substance: CELECOXIB
  18. CELEBREX [Concomitant]
     Active Substance: CELECOXIB
  19. ADVAIR HFA [Concomitant]
     Active Substance: FLUTICASONE PROPIONATE\SALMETEROL XINAFOATE
  20. SINGULAIR [Concomitant]
     Active Substance: MONTELUKAST SODIUM
  21. ALBUTEROL SULFATE [Concomitant]
     Active Substance: ALBUTEROL SULFATE

REACTIONS (1)
  - Arthritis [Unknown]
